FAERS Safety Report 6338238-9 (Version None)
Quarter: 2009Q3

REPORT INFORMATION
  Report Type: 
  Country: None (occurrence: None)
  Receive Date: 20090902
  Receipt Date: 20090826
  Transmission Date: 20100115
  Serious: Yes (Other)
  Sender: FDA-Public Use
  Company Number: PHHY2009BR36806

PATIENT
  Sex: Female

DRUGS (3)
  1. CODATEN [Suspect]
     Indication: OSTEOARTHRITIS
     Dosage: 50 MG, UNK
     Route: 048
  2. DIOVAN [Concomitant]
     Dosage: BOUGHT ON 13 OCT 2005, 14 NOV 2005 AND 14 DEC 2005
  3. MICARDIS [Concomitant]
     Dosage: 80 MG, UNK

REACTIONS (1)
  - GASTRIC OPERATION [None]
